FAERS Safety Report 16442172 (Version 1)
Quarter: 2019Q2

REPORT INFORMATION
  Report Type: Report from Study
  Country: None (occurrence: US)
  Receive Date: 20190617
  Receipt Date: 20190617
  Transmission Date: 20190711
  Serious: No
  Sender: FDA-Public Use
  Company Number: US-US WORLDMEDS, LLC-USW201901-000142

PATIENT
  Age: 59 Year
  Sex: Male

DRUGS (4)
  1. ENTACAPONE. [Concomitant]
     Active Substance: ENTACAPONE
  2. NEUPRO [Concomitant]
     Active Substance: ROTIGOTINE
  3. LEVADOPA/CARBIDOPA [Concomitant]
  4. APOKYN [Suspect]
     Active Substance: APOMORPHINE HYDROCHLORIDE
     Indication: PARKINSON^S DISEASE
     Route: 058
     Dates: start: 20190117

REACTIONS (1)
  - Dyskinesia [Recovered/Resolved]

NARRATIVE: CASE EVENT DATE: 20190117
